FAERS Safety Report 4878666-1 (Version None)
Quarter: 2005Q4

REPORT INFORMATION
  Report Type: 
  Country: None (occurrence: None)
  Receive Date: 20051209
  Receipt Date: 20050428
  Transmission Date: 20060501
  Serious: Yes (Other)
  Sender: FDA-Public Use
  Company Number: USA-2005-0019567

PATIENT
  Age: 56 Year
  Sex: Female

DRUGS (2)
  1. OXYCONTIN [Suspect]
     Indication: PAIN
     Dosage: 10 MG, BID
     Dates: start: 20030101, end: 20040101
  2. AMPHETAMINES (AMFETAMINE) [Suspect]

REACTIONS (1)
  - POLYSUBSTANCE ABUSE [None]
